FAERS Safety Report 10004731 (Version 1)
Quarter: 2014Q1

REPORT INFORMATION
  Report Type: Spontaneous
  Country: CA (occurrence: CA)
  Receive Date: 20140312
  Receipt Date: 20140312
  Transmission Date: 20141002
  Serious: Yes (Other)
  Sender: FDA-Public Use
  Company Number: CA-GLAXOSMITHKLINE-A1064390A

PATIENT
  Age: 64 Year
  Sex: Male
  Weight: 95.5 kg

DRUGS (5)
  1. ADVAIR HFA [Suspect]
     Indication: PRODUCT USED FOR UNKNOWN INDICATION
     Dosage: 2PUFF PER DAY
     Route: 055
  2. NORVASC [Concomitant]
     Route: 048
  3. SPIRIVA [Concomitant]
  4. TYLENOL EXTRA STRENGTH [Concomitant]
     Dosage: 500MG UNKNOWN
     Route: 048
  5. VENTOLIN [Concomitant]

REACTIONS (7)
  - Diplopia [Recovered/Resolved]
  - Eye pain [Recovered/Resolved]
  - Lacrimation increased [Recovered/Resolved]
  - Ocular hyperaemia [Unknown]
  - Photophobia [Unknown]
  - Scab [Unknown]
  - Vision blurred [Unknown]
